FAERS Safety Report 24082915 (Version 5)
Quarter: 2024Q3

REPORT INFORMATION
  Report Type: Spontaneous
  Country: FI (occurrence: FI)
  Receive Date: 20240712
  Receipt Date: 20240926
  Transmission Date: 20241017
  Serious: Yes (Hospitalization, Other)
  Sender: RANBAXY
  Company Number: FI-SUN PHARMACEUTICAL INDUSTRIES LTD-2024RR-456229

PATIENT
  Age: 60 Year
  Sex: Male

DRUGS (1)
  1. ATORVASTATIN [Suspect]
     Active Substance: ATORVASTATIN
     Indication: Type 2 diabetes mellitus
     Dosage: 20 MILLIGRAM, DAILY
     Route: 065

REACTIONS (3)
  - Immune-mediated myositis [Recovered/Resolved]
  - Fall [Unknown]
  - Product use in unapproved indication [Unknown]
